FAERS Safety Report 5957007-2 (Version None)
Quarter: 2008Q4

REPORT INFORMATION
  Report Type: 
  Country: None (occurrence: None)
  Receive Date: 20081118
  Receipt Date: 20080825
  Transmission Date: 20090506
  Serious: No
  Sender: FDA-Public Use
  Company Number: A0744122A

PATIENT
  Age: 94 Year
  Sex: Female

DRUGS (8)
  1. COREG CR [Suspect]
     Dosage: 20MG PER DAY
     Route: 048
     Dates: start: 20080101
  2. DIOVAN [Concomitant]
  3. DITEC [Concomitant]
  4. FUROSEMIDE [Concomitant]
  5. KLOR-CON [Concomitant]
  6. METHAZON [Concomitant]
  7. SPIRONOLACTONE [Concomitant]
  8. HEART MEDICATION [Concomitant]

REACTIONS (1)
  - PSORIASIS [None]
